FAERS Safety Report 15497839 (Version 1)
Quarter: 2018Q4

REPORT INFORMATION
  Report Type: Spontaneous
  Country: US (occurrence: US)
  Receive Date: 20181015
  Receipt Date: 20181015
  Transmission Date: 20190205
  Serious: No
  Sender: FDA-Public Use
  Company Number: US-PFIZER INC-2017215856

PATIENT
  Age: 14 Year
  Sex: Male

DRUGS (13)
  1. GENOTROPIN MQ [Suspect]
     Active Substance: SOMATROPIN
     Indication: GROWTH HORMONE DEFICIENCY
     Dosage: 2.6 MG, DAILY
     Route: 058
     Dates: start: 20071008, end: 20170503
  2. GENOTROPIN MQ [Suspect]
     Active Substance: SOMATROPIN
     Dosage: 0.8 MG, DAILY, (2.0)
     Route: 058
  3. GENOTROPIN MQ [Suspect]
     Active Substance: SOMATROPIN
     Dosage: 3 MG, DAILY (2MG MINIQUICK AND 1MG MINIQUICK)
     Dates: start: 201509
  4. LEVOTHYROXINE. [Concomitant]
     Active Substance: LEVOTHYROXINE
     Dosage: UNK
  5. PEDIAPRED [Concomitant]
     Active Substance: PREDNISOLONE SODIUM PHOSPHATE
     Dosage: UNK
  6. CYLERT [Concomitant]
     Active Substance: PEMOLINE
     Dosage: UNK
  7. GENOTROPIN MQ [Suspect]
     Active Substance: SOMATROPIN
     Dosage: 0.8 MG, DAILY [0.8MG X7 DAYS/WK]
     Route: 058
  8. GENOTROPIN MQ [Suspect]
     Active Substance: SOMATROPIN
     Dosage: 2.8 MG, 1X/DAY (2.8 (2.0 + 0.8) MG )
     Route: 058
  9. TESTOSTERONE. [Concomitant]
     Active Substance: TESTOSTERONE
     Dosage: UNK
  10. GENOTROPIN MQ [Suspect]
     Active Substance: SOMATROPIN
     Indication: HYPOPITUITARISM
     Dosage: 2.4 MG, DAILY
     Route: 058
  11. GENOTROPIN MQ [Suspect]
     Active Substance: SOMATROPIN
     Indication: HYPOTHALAMO-PITUITARY DISORDER
     Dosage: 2 MG, UNK
     Dates: start: 200511
  12. GENOTROPIN MQ [Suspect]
     Active Substance: SOMATROPIN
     Dosage: 2 MG, DAILY [2.0MG X 7 DAYS/WK]
     Route: 058
  13. GENOTROPIN MQ [Suspect]
     Active Substance: SOMATROPIN
     Dosage: 3 MG, DAILY (2MG MINIQUICK AND 1MG MINIQUICK)
     Dates: start: 201509

REACTIONS (4)
  - Eosinophil count increased [Unknown]
  - Blood creatinine decreased [Unknown]
  - Product prescribing error [Unknown]
  - Blood alkaline phosphatase increased [Unknown]

NARRATIVE: CASE EVENT DATE: 20180905
